FAERS Safety Report 26156965 (Version 2)
Quarter: 2025Q4

REPORT INFORMATION
  Report Type: Report from Study
  Country: US (occurrence: US)
  Receive Date: 20251215
  Receipt Date: 20251223
  Transmission Date: 20260117
  Serious: Yes (Other)
  Sender: ACADIA PHARMACEUTICALS
  Company Number: US-ACADIA PHARMACEUTICALS INC.-ACA-2025-PIM-013041

PATIENT
  Sex: Male

DRUGS (12)
  1. NUPLAZID [Suspect]
     Active Substance: PIMAVANSERIN TARTRATE
     Indication: Parkinson^s disease
     Dosage: 34 MILLIGRAM, QD
     Route: 048
     Dates: start: 20251119
  2. COENZYME Q10 [Concomitant]
     Active Substance: DIETARY SUPPLEMENT\UBIDECARENONE
     Dosage: SOFETGEL
  3. DUTASTERIDE [Concomitant]
     Active Substance: DUTASTERIDE
  4. CARBIDOPA\LEVODOPA [Concomitant]
     Active Substance: CARBIDOPA\LEVODOPA
  5. CYANOCOBALAMIN [Concomitant]
     Active Substance: CYANOCOBALAMIN
     Dosage: 10 ML
  6. DONEPEZIL [Concomitant]
     Active Substance: DONEPEZIL
  7. MEMANTINE [Concomitant]
     Active Substance: MEMANTINE
  8. OLIVE OIL [Concomitant]
     Active Substance: OLIVE OIL
  9. HERBALS\TURMERIC [Concomitant]
     Active Substance: HERBALS\TURMERIC
  10. ASCORBIC ACID [Concomitant]
     Active Substance: ASCORBIC ACID
  11. ZINC [Concomitant]
     Active Substance: ZINC
  12. CURCUMIN [Concomitant]
     Active Substance: CURCUMIN

REACTIONS (2)
  - Hallucination [Not Recovered/Not Resolved]
  - Aphasia [Not Recovered/Not Resolved]
